FAERS Safety Report 8046425-7 (Version None)
Quarter: 2012Q1

REPORT INFORMATION
  Report Type: 
  Country: None (occurrence: None)
  Receive Date: 20120113
  Receipt Date: 20120109
  Transmission Date: 20120608
  Serious: Yes (Life-Threatening, Other)
  Sender: FDA-Public Use
  Company Number: US-ASTRAZENECA-2011SE16367

PATIENT
  Age: 52 Year
  Sex: Female

DRUGS (1)
  1. NEXIUM [Suspect]
     Route: 048

REACTIONS (7)
  - DRUG DOSE OMISSION [None]
  - COMA [None]
  - ACUTE RESPIRATORY DISTRESS SYNDROME [None]
  - MALAISE [None]
  - PAIN [None]
  - DYSPNOEA [None]
  - MYOCARDIAL INFARCTION [None]
